FAERS Safety Report 11464931 (Version 2)
Quarter: 2015Q3

REPORT INFORMATION
  Report Type: Spontaneous
  Country: DE (occurrence: DE)
  Receive Date: 20150907
  Receipt Date: 20150929
  Transmission Date: 20151125
  Serious: Yes (Death, Other)
  Sender: FDA-Public Use
  Company Number: ALCN2015DE005469

PATIENT
  Age: 72 Year
  Sex: Female

DRUGS (6)
  1. INSULIN [Concomitant]
     Active Substance: INSULIN NOS
     Indication: TYPE 1 DIABETES MELLITUS
     Dosage: UNK
     Route: 065
  2. TRAVATAN [Suspect]
     Active Substance: TRAVOPROST
     Indication: GLAUCOMA
     Dosage: 1 GTT, QD (AT BEDTIME)
     Route: 047
     Dates: start: 2009
  3. TRAVATAN [Suspect]
     Active Substance: TRAVOPROST
     Indication: POSTOPERATIVE CARE
     Dosage: 1 GTT, BID
     Route: 047
     Dates: start: 2008, end: 2009
  4. TAVOR [Concomitant]
     Active Substance: LORAZEPAM
     Indication: FEAR OF DEATH
     Dosage: 3 DF, UNK
     Route: 065
     Dates: start: 1989, end: 1994
  5. TAVOR [Concomitant]
     Active Substance: LORAZEPAM
     Indication: DEPRESSION
     Dosage: 0.5 DF, VERY RARELY
     Route: 065
     Dates: start: 2015
  6. TAVOR [Concomitant]
     Active Substance: LORAZEPAM
     Indication: JOB DISSATISFACTION
     Dosage: 1 DF, UNK
     Route: 065
     Dates: start: 2013, end: 2015

REACTIONS (21)
  - Carotid artery occlusion [Unknown]
  - Abnormal weight gain [Not Recovered/Not Resolved]
  - Gait disturbance [Not Recovered/Not Resolved]
  - Talipes [Not Recovered/Not Resolved]
  - Feeling cold [Not Recovered/Not Resolved]
  - Memory impairment [Unknown]
  - Discomfort [Unknown]
  - Cardiac failure [Fatal]
  - Cerebrovascular accident [Unknown]
  - Asthenia [Unknown]
  - Balance disorder [Not Recovered/Not Resolved]
  - Dyspnoea [Unknown]
  - Fluid retention [Unknown]
  - Decreased appetite [Unknown]
  - Fall [Not Recovered/Not Resolved]
  - Diarrhoea [Not Recovered/Not Resolved]
  - Vomiting [Unknown]
  - Incontinence [Not Recovered/Not Resolved]
  - Weight decreased [Unknown]
  - Tachycardia [Unknown]
  - Depression [Unknown]

NARRATIVE: CASE EVENT DATE: 2009
